FAERS Safety Report 4684173-1 (Version None)
Quarter: 2005Q2

REPORT INFORMATION
  Report Type: 
  Country: None (occurrence: None)
  Receive Date: 20050607
  Receipt Date: 20041203
  Transmission Date: 20051028
  Serious: Yes (Other)
  Sender: FDA-Public Use
  Company Number: GB-GLAXOSMITHKLINE-B0360673A

PATIENT
  Sex: Male

DRUGS (2)
  1. PAROXETINE HYDROCHLORIDE [Suspect]
     Indication: PANIC DISORDER
     Route: 065
     Dates: start: 19970501
  2. FLECAINIDE ACETATE [Concomitant]

REACTIONS (18)
  - ANXIETY [None]
  - BALANCE DISORDER [None]
  - BLINDNESS TRANSIENT [None]
  - COORDINATION ABNORMAL [None]
  - DECREASED APPETITE [None]
  - DISTURBANCE IN ATTENTION [None]
  - DIZZINESS [None]
  - DRUG WITHDRAWAL SYNDROME [None]
  - DYSPEPSIA [None]
  - EYE PAIN [None]
  - HEADACHE [None]
  - INSOMNIA [None]
  - PAIN IN EXTREMITY [None]
  - PANIC REACTION [None]
  - TINNITUS [None]
  - VISION BLURRED [None]
  - VITREOUS FLOATERS [None]
  - WEIGHT DECREASED [None]
